FAERS Safety Report 8263106-5 (Version None)
Quarter: 2012Q2

REPORT INFORMATION
  Report Type: 
  Country: None (occurrence: None)
  Receive Date: 20120405
  Receipt Date: 20120329
  Transmission Date: 20120825
  Serious: Yes (Hospitalization)
  Sender: FDA-Public Use
  Company Number: 2012SP000989

PATIENT
  Age: 52 Year
  Sex: Female
  Weight: 51 kg

DRUGS (17)
  1. FLONASE [Concomitant]
     Indication: HYPERSENSITIVITY
     Dates: start: 20100401, end: 20120319
  2. ALL OTHER THERAPEUTIC PRODUCTS [Concomitant]
     Indication: UPPER RESPIRATORY TRACT INFECTION
  3. PROTONIX [Concomitant]
     Indication: GASTROOESOPHAGEAL REFLUX DISEASE
     Dates: start: 20120319, end: 20120322
  4. PREMARIN [Concomitant]
     Indication: HYSTERECTOMY
  5. ADVAIR DISKUS 100/50 [Concomitant]
     Indication: CHRONIC OBSTRUCTIVE PULMONARY DISEASE
     Route: 055
     Dates: start: 20101010
  6. SPIRIVA [Concomitant]
     Indication: CHRONIC OBSTRUCTIVE PULMONARY DISEASE
     Route: 048
     Dates: start: 20080101
  7. PREVACID [Concomitant]
     Route: 048
     Dates: start: 20120322
  8. XOPENEX [Suspect]
     Indication: CHRONIC OBSTRUCTIVE PULMONARY DISEASE
     Route: 055
  9. CALTRATE /00944201/ [Concomitant]
     Indication: PROPHYLAXIS
     Route: 048
     Dates: start: 20090101, end: 20120319
  10. FLOVENT [Concomitant]
     Indication: CHRONIC OBSTRUCTIVE PULMONARY DISEASE
     Route: 055
     Dates: start: 20110610
  11. PREVACID [Concomitant]
     Indication: GASTROOESOPHAGEAL REFLUX DISEASE
     Route: 048
     Dates: start: 19990101, end: 20120319
  12. OXIMETAZOLINA [Concomitant]
     Indication: NASAL CONGESTION
     Route: 048
     Dates: start: 20111029
  13. ALBUTEROL [Concomitant]
     Indication: CHRONIC OBSTRUCTIVE PULMONARY DISEASE
     Route: 055
     Dates: start: 20060101
  14. ALL OTHER THERAPEUTIC PRODUCTS [Concomitant]
     Indication: CHRONIC OBSTRUCTIVE PULMONARY DISEASE
     Route: 055
     Dates: start: 20110628, end: 20120319
  15. ALL OTHER THERAPEUTIC PRODUCTS [Concomitant]
     Route: 055
     Dates: start: 20120323
  16. XOPENEX [Suspect]
     Indication: UPPER RESPIRATORY TRACT INFECTION
     Route: 055
  17. ALL OTHER THERAPEUTIC PRODUCTS [Concomitant]

REACTIONS (3)
  - FORCED EXPIRATORY VOLUME DECREASED [None]
  - DRUG INEFFECTIVE [None]
  - CHRONIC OBSTRUCTIVE PULMONARY DISEASE [None]
